FAERS Safety Report 8938365 (Version 1)
Quarter: 2012Q4

REPORT INFORMATION
  Report Type: 
  Country: US (occurrence: US)
  Receive Date: 20121203
  Receipt Date: 20121203
  Transmission Date: 20130627
  Serious: Yes (Other)
  Sender: FDA-Public Use
  Company Number: PHEH2012US023465

PATIENT
  Age: 88 Year
  Sex: Female

DRUGS (3)
  1. MIACALCIN [Suspect]
     Dosage: UNK UKN, UNK
     Route: 045
     Dates: start: 1994, end: 2008
  2. FOSAMAX [Suspect]
     Dosage: UNK UKN, UNK
     Dates: start: 2011
  3. PROLIA [Suspect]
     Dosage: UNK UKN, UNK
     Dates: start: 201111, end: 201205

REACTIONS (2)
  - Lung neoplasm malignant [Unknown]
  - Neuroendocrine carcinoma of the skin [Unknown]
